FAERS Safety Report 21066706 (Version 6)
Quarter: 2022Q4

REPORT INFORMATION
  Report Type: Spontaneous
  Country: CA (occurrence: CA)
  Receive Date: 20220711
  Receipt Date: 20221215
  Transmission Date: 20230113
  Serious: Yes (Hospitalization, Other)
  Sender: FDA-Public Use
  Company Number: CA-CELLTRION INC.-2021CA011670

PATIENT

DRUGS (14)
  1. INFLECTRA [Suspect]
     Active Substance: INFLIXIMAB-DYYB
     Indication: Crohn^s disease
     Dosage: 300 MG 0,2,6 THEN EVERY 8 WEEKS
     Route: 042
     Dates: start: 20210720, end: 20220621
  2. INFLECTRA [Suspect]
     Active Substance: INFLIXIMAB-DYYB
     Dosage: 300 MG 0,2,6 THEN EVERY 8 WEEKS
     Route: 042
     Dates: start: 20210803
  3. INFLECTRA [Suspect]
     Active Substance: INFLIXIMAB-DYYB
     Dosage: 300 MG 0,2,6 THEN EVERY 8 WEEKS
     Route: 042
     Dates: start: 20210831
  4. INFLECTRA [Suspect]
     Active Substance: INFLIXIMAB-DYYB
     Dosage: 300 MG 0,2,6 THEN EVERY 8 WEEKS
     Route: 042
     Dates: start: 20211026
  5. INFLECTRA [Suspect]
     Active Substance: INFLIXIMAB-DYYB
     Dosage: 300 MG 0,2,6 THEN EVERY 8 WEEKS
     Route: 042
     Dates: start: 20211221
  6. INFLECTRA [Suspect]
     Active Substance: INFLIXIMAB-DYYB
     Dosage: 300 MG 0,2,6 THEN EVERY 8 WEEKS
     Route: 042
     Dates: start: 20220215
  7. INFLECTRA [Suspect]
     Active Substance: INFLIXIMAB-DYYB
     Dosage: 300 MG 0,2,6 THEN EVERY 8 WEEKS
     Route: 042
     Dates: start: 20220503
  8. INFLECTRA [Suspect]
     Active Substance: INFLIXIMAB-DYYB
     Dosage: 300 MG 0,2,6 THEN EVERY 8 WEEKS
     Route: 042
     Dates: start: 20220621
  9. INFLECTRA [Suspect]
     Active Substance: INFLIXIMAB-DYYB
     Dosage: 600 MG, EVERY 8 WEEKS
     Route: 042
     Dates: start: 20220816
  10. INFLECTRA [Suspect]
     Active Substance: INFLIXIMAB-DYYB
     Dosage: 600 MG, EVERY 8 WEEKS
     Route: 042
     Dates: start: 20221011
  11. INFLECTRA [Suspect]
     Active Substance: INFLIXIMAB-DYYB
     Dosage: 600 MG, EVERY 8 WEEKS
     Route: 042
     Dates: start: 20221205
  12. ENTOCORT [Concomitant]
     Active Substance: BUDESONIDE
     Dosage: 1 DF DOSAGE NOT AVAILABLE
     Route: 065
  13. METHOTREXATE SODIUM [Concomitant]
     Active Substance: METHOTREXATE SODIUM
     Dosage: 1 DF DOSAGE NOT AVAILABLE
     Route: 065
     Dates: start: 2021
  14. MESALAMINE [Concomitant]
     Active Substance: MESALAMINE
     Dosage: 1 DF DOSAGE NOT AVAILABLE
     Route: 065

REACTIONS (10)
  - Intestinal obstruction [Unknown]
  - Faecaloma [Unknown]
  - Off label use [Unknown]
  - Intentional product use issue [Unknown]
  - Inappropriate schedule of product administration [Unknown]
  - Blood pressure decreased [Unknown]
  - Blood pressure fluctuation [Unknown]
  - Blood pressure systolic increased [Unknown]
  - Hypotension [Recovered/Resolved]
  - Body temperature increased [Unknown]

NARRATIVE: CASE EVENT DATE: 20210803
